FAERS Safety Report 13389968 (Version 2)
Quarter: 2017Q2

REPORT INFORMATION
  Report Type: Report from Study
  Country: ES (occurrence: ES)
  Receive Date: 20170331
  Receipt Date: 20170405
  Transmission Date: 20170830
  Serious: Yes (Death, Hospitalization)
  Sender: FDA-Public Use
  Company Number: ES-ROCHE-1913715

PATIENT
  Age: 59 Year
  Sex: Male
  Weight: 50 kg

DRUGS (16)
  1. TACROLIMUS. [Suspect]
     Active Substance: TACROLIMUS
     Indication: LUNG TRANSPLANT
     Route: 048
     Dates: start: 20141223, end: 20150417
  2. METHYLPREDNISOLONE. [Concomitant]
     Active Substance: METHYLPREDNISOLONE
     Route: 048
     Dates: start: 20141223
  3. FILGRASTIM [Concomitant]
     Active Substance: FILGRASTIM
     Route: 058
     Dates: start: 20150113, end: 20150416
  4. MYFORTIC [Concomitant]
     Active Substance: MYCOPHENOLATE SODIUM
     Route: 065
     Dates: start: 20150416
  5. VALGANCICLOVIR. [Suspect]
     Active Substance: VALGANCICLOVIR
     Indication: ANTIVIRAL PROPHYLAXIS
     Route: 065
     Dates: start: 20141121, end: 20150417
  6. METHYLPREDNISOLONE. [Concomitant]
     Active Substance: METHYLPREDNISOLONE
     Route: 048
     Dates: start: 20141223, end: 20150416
  7. OMEPRAZOLE. [Concomitant]
     Active Substance: OMEPRAZOLE
     Route: 048
     Dates: start: 20141223, end: 20150416
  8. OMEPRAZOLE. [Concomitant]
     Active Substance: OMEPRAZOLE
     Route: 042
     Dates: start: 20150416
  9. AMPHOTERICIN B. [Concomitant]
     Active Substance: AMPHOTERICIN B
     Route: 050
     Dates: start: 20141223
  10. COTRIMOXAZOLE [Concomitant]
     Active Substance: SULFAMETHOXAZOLE\TRIMETHOPRIM
     Route: 048
     Dates: start: 20141223
  11. FILGRASTIM [Concomitant]
     Active Substance: FILGRASTIM
     Route: 065
     Dates: start: 20150416
  12. PRIMPERAN [Concomitant]
     Active Substance: METOCLOPRAMIDE HYDROCHLORIDE
     Route: 048
     Dates: start: 20150107
  13. SECALIP [Concomitant]
     Active Substance: FENOFIBRATE
     Route: 048
     Dates: start: 20141223
  14. MYFORTIC [Concomitant]
     Active Substance: MYCOPHENOLATE SODIUM
     Route: 048
     Dates: start: 20141223
  15. HIDROFEROL [Concomitant]
     Active Substance: CALCIFEDIOL
     Route: 048
     Dates: start: 20150325
  16. COLISTIMETHATE [Concomitant]
     Active Substance: COLISTIMETHATE SODIUM
     Route: 050
     Dates: start: 20141223

REACTIONS (5)
  - Pleural effusion [Unknown]
  - Acute kidney injury [Fatal]
  - Sepsis [Unknown]
  - Septic shock [Unknown]
  - Mediastinitis [Fatal]

NARRATIVE: CASE EVENT DATE: 20150416
